FAERS Safety Report 9732877 (Version 1)
Quarter: 2013Q4

REPORT INFORMATION
  Report Type: Other
  Country: CA (occurrence: CA)
  Receive Date: 20131205
  Receipt Date: 20131205
  Transmission Date: 20140711
  Serious: Yes (Other)
  Sender: FDA-Public Use
  Company Number: CA-BRISTOL-MYERS SQUIBB COMPANY-19864677

PATIENT
  Age: 53 Year
  Sex: Female

DRUGS (2)
  1. TRIAMCINOLONE ACE INJ [Suspect]
     Indication: MUSCULOSKELETAL PAIN
     Route: 014
  2. RITONAVIR [Interacting]
     Indication: HIV INFECTION

REACTIONS (2)
  - Cushing^s syndrome [Unknown]
  - Drug interaction [Unknown]
